FAERS Safety Report 12321719 (Version 2)
Quarter: 2021Q2

REPORT INFORMATION
  Report Type: Spontaneous
  Country: GB (occurrence: GB)
  Receive Date: 20160502
  Receipt Date: 20210618
  Transmission Date: 20210716
  Serious: Yes (Other)
  Sender: FDA-Public Use
  Company Number: GB-AUROBINDO-AUR-APL-2016-05212

PATIENT
  Age: 15 Year
  Sex: Male

DRUGS (3)
  1. IBUPROFEN 400MG [Suspect]
     Active Substance: IBUPROFEN
     Indication: LEPTOSPIROSIS
     Dosage: 400 MILLIGRAM, 3 TIMES A DAY
     Route: 065
  2. IBUPROFEN 400MG [Suspect]
     Active Substance: IBUPROFEN
     Indication: MYALGIA
  3. IBUPROFEN 400MG [Suspect]
     Active Substance: IBUPROFEN
     Indication: HEADACHE

REACTIONS (13)
  - Proteinuria [Recovered/Resolved]
  - Erythema [Recovered/Resolved]
  - Pyrexia [Recovered/Resolved]
  - Mucosal dryness [Recovered/Resolved]
  - Feeling cold [Recovered/Resolved]
  - Haematuria [Recovered/Resolved]
  - Tachycardia [Recovered/Resolved]
  - Malaise [Recovered/Resolved]
  - Renal injury [Recovered/Resolved]
  - Polyuria [Recovered/Resolved]
  - Toxicity to various agents [Recovered/Resolved]
  - Dehydration [Recovered/Resolved]
  - Rash erythematous [Recovered/Resolved]
